FAERS Safety Report 7281862-X (Version None)
Quarter: 2011Q1

REPORT INFORMATION
  Report Type: 
  Country: None (occurrence: None)
  Receive Date: 20110208
  Receipt Date: 20110126
  Transmission Date: 20110831
  Serious: Yes (Disabling, Other)
  Sender: FDA-Public Use
  Company Number: GB-MYLANLABS-2011S1001769

PATIENT
  Age: 57 Year
  Sex: Male
  Weight: 73 kg

DRUGS (6)
  1. DOSULEPIN [Concomitant]
     Indication: PRODUCT USED FOR UNKNOWN INDICATION
     Dates: start: 20101112, end: 20110107
  2. MIRTAZAPINE [Suspect]
     Indication: DEPRESSION
     Dates: start: 20110117
  3. DOSULEPIN [Concomitant]
     Dates: start: 20100917, end: 20101112
  4. DOSULEPIN [Concomitant]
     Dates: start: 20101119, end: 20101126
  5. BISOPROLOL [Concomitant]
     Indication: PRODUCT USED FOR UNKNOWN INDICATION
     Dates: start: 20110117
  6. WARFARIN SODIUM [Concomitant]
     Indication: PRODUCT USED FOR UNKNOWN INDICATION
     Dates: start: 20110117

REACTIONS (1)
  - ATRIAL FIBRILLATION [None]
